FAERS Safety Report 24946600 (Version 1)
Quarter: 2025Q1

REPORT INFORMATION
  Report Type: Spontaneous
  Country: US (occurrence: US)
  Receive Date: 20250210
  Receipt Date: 20250210
  Transmission Date: 20250409
  Serious: Yes (Life-Threatening, Hospitalization, Other)
  Sender: ALEMBIC
  Company Number: US-ALEMBIC PHARMACUETICALS LIMITED-2025SCAL000066

PATIENT

DRUGS (4)
  1. HYDROCHLOROTHIAZIDE [Suspect]
     Active Substance: HYDROCHLOROTHIAZIDE
     Indication: Hypertension
     Route: 065
  2. LISINOPRIL [Suspect]
     Active Substance: LISINOPRIL
     Indication: Hypertension
     Route: 065
     Dates: start: 201507
  3. LISINOPRIL [Suspect]
     Active Substance: LISINOPRIL
     Route: 065
     Dates: start: 201507
  4. ROSUVASTATIN [Suspect]
     Active Substance: ROSUVASTATIN
     Indication: Hyperlipidaemia
     Route: 065

REACTIONS (22)
  - Hyperkalaemia [Unknown]
  - Metabolic acidosis [Unknown]
  - Troponin I increased [Unknown]
  - Leukocytosis [Recovered/Resolved]
  - Hypophagia [Unknown]
  - Cough [Unknown]
  - N-terminal prohormone brain natriuretic peptide increased [Unknown]
  - Weight decreased [Unknown]
  - Acute kidney injury [Unknown]
  - Perinephric oedema [Unknown]
  - Blood bicarbonate decreased [Unknown]
  - Fatigue [Unknown]
  - Asthenia [Unknown]
  - Confusional state [Unknown]
  - Blood urea increased [Unknown]
  - Blood creatinine increased [Recovering/Resolving]
  - Blood phosphorus increased [Unknown]
  - Anion gap increased [Unknown]
  - Glomerular filtration rate decreased [Unknown]
  - Blood urine present [Unknown]
  - Protein urine present [Unknown]
  - White blood cells urine positive [Unknown]
